FAERS Safety Report 6979164-1 (Version None)
Quarter: 2010Q3

REPORT INFORMATION
  Report Type: 
  Country: None (occurrence: None)
  Receive Date: 20100913
  Receipt Date: 20100901
  Transmission Date: 20110219
  Serious: Yes (Other)
  Sender: FDA-Public Use
  Company Number: US-PFIZER INC-2010110612

PATIENT
  Sex: Male
  Weight: 117.01 kg

DRUGS (6)
  1. LYRICA [Suspect]
     Indication: TRIGEMINAL NEURALGIA
     Dosage: 50 MG, 3X/DAY
     Route: 048
     Dates: start: 20090101
  2. LYRICA [Suspect]
     Dosage: 75 MG, 3X/DAY
     Route: 048
     Dates: start: 20100306, end: 20100823
  3. LUNESTA [Concomitant]
     Indication: INSOMNIA
     Dosage: 3 MG, 1X/DAY
     Route: 048
  4. CELEXA [Concomitant]
     Indication: DEPRESSION
     Dosage: 20 MG, 1X/DAY
     Route: 048
  5. ALEVE (CAPLET) [Concomitant]
     Indication: PAIN
     Dosage: 220 MG, EVERY 4 HRS
     Route: 048
  6. XALATAN [Concomitant]
     Indication: GLAUCOMA
     Dosage: UNK
     Route: 047

REACTIONS (5)
  - ABDOMINAL PAIN UPPER [None]
  - DIARRHOEA [None]
  - HEADACHE [None]
  - KNEE OPERATION [None]
  - NAUSEA [None]
